FAERS Safety Report 4311425-7 (Version None)
Quarter: 2004Q1

REPORT INFORMATION
  Report Type: 
  Country: None (occurrence: None)
  Receive Date: 20040303
  Receipt Date: 20040303
  Transmission Date: 20041129
  Serious: Yes (Life-Threatening, Hospitalization)
  Sender: FDA-Public Use
  Company Number: None

PATIENT
  Age: 53 Year
  Sex: Male
  Weight: 124 kg

DRUGS (12)
  1. PROVIGIL [Suspect]
     Indication: NARCOLEPSY
     Dosage: 200MG PO DAILY
     Route: 048
     Dates: start: 20021119, end: 20021121
  2. PENICILLIN [Suspect]
     Indication: PROPHYLAXIS
  3. QUINAPRIL HCL [Suspect]
     Indication: HYPERTENSION
     Dosage: 40MG DAILY
  4. INSULIN [Concomitant]
  5. THIAMINE [Concomitant]
  6. FOLIC ACID [Concomitant]
  7. HEPARIN [Concomitant]
  8. ALBUTEROL [Concomitant]
  9. ATORVENT [Concomitant]
  10. ASPIRIN [Concomitant]
  11. METOPROLOL [Concomitant]
  12. LORAZEPAM [Concomitant]

REACTIONS (2)
  - ANGIONEUROTIC OEDEMA [None]
  - MYOCARDIAL INFARCTION [None]
